FAERS Safety Report 6801264-7 (Version None)
Quarter: 2010Q2

REPORT INFORMATION
  Report Type: 
  Country: None (occurrence: None)
  Receive Date: 20100629
  Receipt Date: 20100303
  Transmission Date: 20101027
  Serious: No
  Sender: FDA-Public Use
  Company Number: A0848035A

PATIENT
  Age: 43 Year
  Sex: Female

DRUGS (4)
  1. LAMICTAL [Suspect]
     Dosage: 400MG PER DAY
     Route: 048
     Dates: start: 20091101
  2. PHENOBARB [Concomitant]
  3. LEVOXYL [Concomitant]
  4. CIPRO [Concomitant]

REACTIONS (2)
  - PARAESTHESIA [None]
  - URINARY INCONTINENCE [None]
